FAERS Safety Report 14179620 (Version 1)
Quarter: 2017Q4

REPORT INFORMATION
  Report Type: Spontaneous
  Country: US (occurrence: US)
  Receive Date: 20171110
  Receipt Date: 20171110
  Transmission Date: 20180321
  Serious: No
  Sender: FDA-Public Use
  Company Number: US-SHIRE-US201726291

PATIENT
  Age: 46 Year
  Sex: Male

DRUGS (2)
  1. CINRYZE [Suspect]
     Active Substance: HUMAN C1-ESTERASE INHIBITOR
     Indication: HEREDITARY ANGIOEDEMA
     Dosage: 1000 IU, EVERY 3 DAYS
     Route: 065
     Dates: start: 20160728
  2. FIRAZYR [Suspect]
     Active Substance: ICATIBANT ACETATE
     Indication: PRODUCT USED FOR UNKNOWN INDICATION
     Dosage: 30 IU, AS REQ^D
     Route: 065
     Dates: start: 20160711

REACTIONS (4)
  - Cough [Unknown]
  - Influenza [Unknown]
  - Muscle spasms [Not Recovered/Not Resolved]
  - Hereditary angioedema [Unknown]

NARRATIVE: CASE EVENT DATE: 201709
